FAERS Safety Report 9096928 (Version 1)
Quarter: 2013Q1

REPORT INFORMATION
  Report Type: Spontaneous
  Country: US (occurrence: None)
  Receive Date: 20130125
  Receipt Date: 20130125
  Transmission Date: 20140127
  Serious: No
  Sender: FDA-Public Use
  Company Number: 2013-0332

PATIENT
  Age: 9 Year
  Sex: Male
  Weight: 16.96 kg

DRUGS (1)
  1. INCRELEX (INCRELEX 10MG/ML) (MECASERMIN) (MECASERMIN) [Suspect]
     Indication: FAILURE TO THRIVE
     Dosage: 306 UG/KG (153 UG/KG, 2 IN 1)
     Route: 058
     Dates: start: 20100216

REACTIONS (1)
  - Tonsillectomy [None]
